FAERS Safety Report 18198408 (Version 1)
Quarter: 2020Q3

REPORT INFORMATION
  Report Type: Spontaneous
  Country: DE (occurrence: DE)
  Receive Date: 20200826
  Receipt Date: 20200826
  Transmission Date: 20201103
  Serious: Yes (Hospitalization)
  Sender: FDA-Public Use
  Company Number: DE-TEVA-2020-DE-1819656

PATIENT
  Age: 71 Year
  Sex: Male

DRUGS (13)
  1. PREDNISOLON [Suspect]
     Active Substance: PREDNISOLONE
     Dosage: LAST INTAKE UNTIL MARCH
     Route: 065
  2. MAGNESIUM OXIDE. [Concomitant]
     Active Substance: MAGNESIUM OXIDE
     Dosage: 2 DOSAGE FORMS DAILY; 1?1?0?0
  3. OMEGA 3 GLENMARK 1000MG [Concomitant]
     Dosage: 3000 MILLIGRAM DAILY; 1000 MG, 1?1?1?0
  4. RAMIPRIL. [Concomitant]
     Active Substance: RAMIPRIL
     Dosage: 5 MILLIGRAM DAILY; 5 MG, 1?0?0?0
  5. ZYTIGA [Suspect]
     Active Substance: ABIRATERONE ACETATE
     Dosage: 2 DOSAGE FORMS DAILY; 500 MG, 2?0?0?0
  6. METOPROLOL. [Concomitant]
     Active Substance: METOPROLOL
     Dosage: 190 MILLIGRAM DAILY; 95 MG, 1?0?1?0
  7. METAMIZOL [Concomitant]
     Active Substance: METAMIZOLE SODIUM
     Dosage: 2000 MILLIGRAM DAILY; 500 MG, 1?1?1?1
  8. ACETYLSALICYLSAURE [Concomitant]
     Active Substance: ASPIRIN
     Dosage: 100 MILLIGRAM DAILY; 100 MG, 0?1?0?0
  9. SELEN?LOGES 300UG [Concomitant]
     Dosage: 300 MICROGRAM DAILY; 300 UG, 1?0?0?0
  10. CERUSSIT [Concomitant]
     Dosage: 1 DOSAGE FORMS DAILY; 1?0?0?0
  11. METFORMIN [Concomitant]
     Active Substance: METFORMIN HYDROCHLORIDE
     Dosage: 850 MILLIGRAM DAILY; 850 MG, 0?1?0?0
  12. FUROSEMID [Concomitant]
     Active Substance: FUROSEMIDE
     Dosage: .5 DOSAGE FORMS DAILY; 20 MG, 0.5?0?0?0
  13. EICHENMISTELKRAUT [Concomitant]
     Dosage: 1 DOSAGE FORMS DAILY; 1?0?0?0

REACTIONS (7)
  - Fluid retention [Recovering/Resolving]
  - Dyspnoea [Recovering/Resolving]
  - Cardiac failure [Recovering/Resolving]
  - Hypertension [Recovering/Resolving]
  - Product administration error [Unknown]
  - Hypokalaemia [Recovering/Resolving]
  - Electrolyte imbalance [Recovering/Resolving]

NARRATIVE: CASE EVENT DATE: 20200301
